FAERS Safety Report 7213913-2 (Version None)
Quarter: 2011Q1

REPORT INFORMATION
  Report Type: 
  Country: None (occurrence: None)
  Receive Date: 20110106
  Receipt Date: 20101223
  Transmission Date: 20110831
  Serious: Yes (Hospitalization)
  Sender: FDA-Public Use
  Company Number: FR-GENENTECH-311897

PATIENT
  Sex: Male

DRUGS (18)
  1. MELPHALAN [Suspect]
     Indication: MANTLE CELL LYMPHOMA
     Dosage: 280 MG, QD
     Route: 065
     Dates: start: 20100829, end: 20100829
  2. TRIFLUCAN [Concomitant]
     Indication: ANTIFUNGAL PROPHYLAXIS
     Dosage: UNK
     Route: 048
  3. CISPLATIN [Suspect]
     Dosage: UNK
     Route: 065
     Dates: end: 20100709
  4. DEXAMETHASONE [Suspect]
     Dosage: UNK
     Route: 065
     Dates: end: 20100712
  5. IRBESARTAN [Suspect]
     Indication: HYPERTENSION
     Dosage: UNK
     Route: 048
  6. RITUXIMAB [Suspect]
     Dosage: 1000 MG, QD
     Route: 065
     Dates: start: 20100824, end: 20100824
  7. DEXAMETHASONE [Suspect]
     Indication: MANTLE CELL LYMPHOMA
     Dosage: UNK
     Route: 065
     Dates: start: 20100511
  8. OXALIPLATIN [Suspect]
     Indication: MANTLE CELL LYMPHOMA
     Dosage: UNK
     Route: 065
     Dates: start: 20100511
  9. CYTARABINE [Suspect]
     Dosage: UNK
     Route: 065
     Dates: start: 20100826, end: 20100829
  10. RITUXIMAB [Suspect]
     Indication: MANTLE CELL LYMPHOMA
     Dosage: UNK
     Route: 065
     Dates: start: 20100511
  11. BACTRIM [Concomitant]
     Indication: PROPHYLAXIS
     Dosage: UNK
     Route: 048
     Dates: start: 20100511
  12. CISPLATIN [Suspect]
     Indication: MANTLE CELL LYMPHOMA
     Dosage: UNK
     Route: 065
     Dates: start: 20100511
  13. CYTARABINE [Suspect]
     Indication: MANTLE CELL LYMPHOMA
     Dosage: UNK
     Route: 065
     Dates: start: 20100511, end: 20100820
  14. CARMUSTINE [Suspect]
     Indication: MANTLE CELL LYMPHOMA
     Dosage: 600 MG, QD
     Route: 065
     Dates: start: 20100825, end: 20100825
  15. HYDROCHLOROTHIAZIDE [Suspect]
     Indication: HYPERTENSION
     Dosage: UNK
     Route: 048
  16. ZELITREX [Concomitant]
     Indication: ANTIVIRAL PROPHYLAXIS
     Dosage: UNK
     Route: 048
     Dates: start: 20100511
  17. RITUXIMAB [Suspect]
     Dosage: UNK
     Route: 065
     Dates: start: 20100823
  18. ETOPOSIDE [Suspect]
     Indication: MANTLE CELL LYMPHOMA
     Dosage: 800 MG, QD
     Route: 065
     Dates: start: 20100826, end: 20100829

REACTIONS (2)
  - RENAL FAILURE ACUTE [None]
  - NEPHROANGIOSCLEROSIS [None]
